FAERS Safety Report 23465540 (Version 1)
Quarter: 2024Q1

REPORT INFORMATION
  Report Type: Spontaneous
  Country: US (occurrence: US)
  Receive Date: 20240201
  Receipt Date: 20240201
  Transmission Date: 20240410
  Serious: Yes (Hospitalization)
  Sender: FDA-Public Use
  Company Number: US-MYLANLABS-2024M1009362

PATIENT
  Age: 63 Year
  Sex: Male

DRUGS (3)
  1. AMIODARONE [Suspect]
     Active Substance: AMIODARONE
     Indication: Atrial fibrillation
     Dosage: 150 MILLIGRAM; LOADED
     Route: 042
  2. AMIODARONE [Suspect]
     Active Substance: AMIODARONE
     Dosage: UNK; CONTINUOUS IV INFUSION
     Route: 042
  3. METOPROLOL [Suspect]
     Active Substance: METOPROLOL
     Indication: Atrial fibrillation
     Dosage: UNK
     Route: 042

REACTIONS (5)
  - Hepatotoxicity [Recovering/Resolving]
  - Acute hepatic failure [Recovering/Resolving]
  - Coagulopathy [Unknown]
  - Hepatic encephalopathy [Recovering/Resolving]
  - Drug ineffective [Unknown]
